FAERS Safety Report 7669032-4 (Version None)
Quarter: 2011Q3

REPORT INFORMATION
  Report Type: 
  Country: None (occurrence: None)
  Receive Date: 20110804
  Receipt Date: 20110720
  Transmission Date: 20111222
  Serious: Yes (Other)
  Sender: FDA-Public Use
  Company Number: AUR-APL-2011-04370

PATIENT
  Age: 61 Year
  Sex: Male

DRUGS (5)
  1. FORTISIP (FORTISIP) [Concomitant]
  2. MIRTAZAPINE [Suspect]
     Indication: DEPRESSION
     Dosage: (15 MG), ORAL
     Route: 048
     Dates: end: 20110707
  3. FLUPENTHIXOL (FLUPENTIXOL DECANOATE) [Concomitant]
  4. PROCYCLIDINE (PROCYCLIDINE) [Concomitant]
  5. TAMSULOSIN HCL [Concomitant]

REACTIONS (1)
  - LYMPHOCYTE COUNT DECREASED [None]
